FAERS Safety Report 20882390 (Version 1)
Quarter: 2022Q2

REPORT INFORMATION
  Report Type: Spontaneous
  Country: US (occurrence: US)
  Receive Date: 20220527
  Receipt Date: 20220527
  Transmission Date: 20220721
  Serious: No
  Sender: FDA-Public Use
  Company Number: US-HORIZON THERAPEUTICS-HZN-2021-003873

PATIENT
  Sex: Female

DRUGS (2)
  1. RAYOS [Suspect]
     Active Substance: PREDNISONE
     Indication: Rheumatoid arthritis
     Dosage: 5 MG, BID, 2 TABS DAILY
     Route: 065
  2. RAYOS [Suspect]
     Active Substance: PREDNISONE
     Dosage: 1 MG
     Route: 065

REACTIONS (2)
  - Anger [Unknown]
  - Feeling abnormal [Unknown]
